FAERS Safety Report 7590902-X (Version None)
Quarter: 2011Q3

REPORT INFORMATION
  Report Type: 
  Country: None (occurrence: None)
  Receive Date: 20110705
  Receipt Date: 20110625
  Transmission Date: 20111222
  Serious: Yes (Hospitalization, Other)
  Sender: FDA-Public Use
  Company Number: PHHO2011CA04248

PATIENT
  Sex: Male
  Weight: 65.6 kg

DRUGS (5)
  1. TASIGNA [Suspect]
     Indication: CHRONIC MYELOID LEUKAEMIA
     Dosage: 400 MG, BID
     Route: 048
     Dates: start: 20100405, end: 20110609
  2. ADVIL PM [Concomitant]
     Indication: HEADACHE
     Dosage: UNK
  3. TRAMADOL HCL [Concomitant]
     Indication: PAIN IN EXTREMITY
     Dosage: 37.5 MG, TID
     Route: 048
     Dates: start: 20110525, end: 20110605
  4. TASIGNA [Suspect]
     Dosage: 400 MG, BID
     Route: 048
     Dates: start: 20110611, end: 20110622
  5. TASIGNA [Suspect]
     Dosage: NO TREATMENT
     Dates: start: 20110610, end: 20110610

REACTIONS (9)
  - DIASTOLIC DYSFUNCTION [None]
  - ARTERIOSCLEROSIS CORONARY ARTERY [None]
  - VASCULITIS [None]
  - CORONARY ARTERY DISEASE [None]
  - CHOLECYSTITIS [None]
  - ACUTE CORONARY SYNDROME [None]
  - PULMONARY HYPERTENSION [None]
  - ABDOMINAL PAIN UPPER [None]
  - TROPONIN INCREASED [None]
